FAERS Safety Report 14063400 (Version 2)
Quarter: 2017Q4

REPORT INFORMATION
  Report Type: Report from Study
  Country: DE (occurrence: DE)
  Receive Date: 20171009
  Receipt Date: 20171201
  Transmission Date: 20180321
  Serious: Yes (Hospitalization)
  Sender: FDA-Public Use
  Company Number: DE-SA-2017SA189484

PATIENT
  Age: 37 Year
  Sex: Male
  Weight: 62 kg

DRUGS (1)
  1. LEMTRADA [Suspect]
     Active Substance: ALEMTUZUMAB
     Indication: MULTIPLE SCLEROSIS
     Route: 041
     Dates: start: 20170306, end: 20170310

REACTIONS (3)
  - Herpes zoster [Recovered/Resolved]
  - Blister [Recovered/Resolved]
  - Pain [Recovered/Resolved]

NARRATIVE: CASE EVENT DATE: 20170820
